FAERS Safety Report 6173112-2 (Version None)
Quarter: 2009Q2

REPORT INFORMATION
  Report Type: 
  Country: None (occurrence: None)
  Receive Date: 20090430
  Receipt Date: 20090420
  Transmission Date: 20091009
  Serious: Yes (Other)
  Sender: FDA-Public Use
  Company Number: JP-PFIZER INC-2009202281

PATIENT

DRUGS (1)
  1. AZITHROMYCIN [Suspect]
     Indication: RESPIRATORY DISORDER
     Dosage: UNK

REACTIONS (1)
  - PULMONARY OEDEMA [None]
